FAERS Safety Report 26196441 (Version 1)
Quarter: 2025Q4

REPORT INFORMATION
  Report Type: Spontaneous
  Country: US (occurrence: US)
  Receive Date: 20251224
  Receipt Date: 20251224
  Transmission Date: 20260117
  Serious: Yes (Hospitalization)
  Sender: MDD OPERATIONS
  Company Number: US-MDD US Operations-MDD202511-004691

PATIENT
  Age: 69 Year
  Sex: Female

DRUGS (1)
  1. ONAPGO [Suspect]
     Active Substance: APOMORPHINE HYDROCHLORIDE
     Indication: Parkinson^s disease
     Dosage: 2MG PER HOUR UP TO 16 HOURS PER DAY
     Dates: start: 20251014, end: 202512

REACTIONS (3)
  - Brain stem haemorrhage [Unknown]
  - Asthenia [Unknown]
  - Fall [Unknown]
